FAERS Safety Report 7292952-X (Version None)
Quarter: 2011Q1

REPORT INFORMATION
  Report Type: 
  Country: None (occurrence: None)
  Receive Date: 20110209
  Receipt Date: 20110209
  Transmission Date: 20110831
  Serious: Yes (Life-Threatening)
  Sender: FDA-Public Use
  Company Number: None

PATIENT
  Age: 50 Year
  Sex: Female

DRUGS (1)
  1. VECURONIUM BROMIDE [Suspect]
     Indication: SURGERY
     Dosage: 7MG ONCE IV
     Route: 042
     Dates: start: 20110202, end: 20110202

REACTIONS (1)
  - ANAPHYLACTIC REACTION [None]
